FAERS Safety Report 6665510-5 (Version None)
Quarter: 2010Q2

REPORT INFORMATION
  Report Type: 
  Country: None (occurrence: None)
  Receive Date: 20100402
  Receipt Date: 20100325
  Transmission Date: 20101027
  Serious: Yes (Hospitalization, Other)
  Sender: FDA-Public Use
  Company Number: PL-WYE-H11295709

PATIENT
  Sex: Male
  Weight: 100 kg

DRUGS (7)
  1. TEMSIROLIMUS [Suspect]
     Indication: RENAL CELL CARCINOMA
     Route: 042
     Dates: start: 20081126, end: 20090916
  2. BETALOC [Concomitant]
     Indication: HYPERTENSION
     Dosage: 20K, 1X50
     Dates: start: 20050201
  3. MORPHINE [Concomitant]
     Indication: CHEST PAIN
     Dosage: 10MG PRN
     Route: 058
     Dates: start: 20090928
  4. TERTENSIF [Concomitant]
     Indication: HYPERTENSION
     Dosage: 5R, 1X1
     Dates: start: 20050201
  5. CODEINE SULFATE [Concomitant]
     Indication: COUGH
     Dosage: 2 X20MG
     Dates: start: 20090928
  6. BEVACIZUMAB [Suspect]
     Indication: RENAL CELL CARCINOMA
     Route: 042
     Dates: start: 20081126, end: 20090916
  7. KETONAL [Concomitant]
     Indication: HEADACHE
     Dosage: PRN
     Dates: start: 20090325

REACTIONS (1)
  - EMPYEMA [None]
